FAERS Safety Report 5042534-5 (Version None)
Quarter: 2006Q3

REPORT INFORMATION
  Report Type: 
  Country: None (occurrence: None)
  Receive Date: 20060705
  Receipt Date: 20060626
  Transmission Date: 20061208
  Serious: Yes (Other)
  Sender: FDA-Public Use
  Company Number: 2006UW13385

PATIENT
  Age: 35 Year
  Sex: Male

DRUGS (2)
  1. TOPROL-XL [Suspect]
  2. NORVASC [Suspect]

REACTIONS (2)
  - RENAL FAILURE [None]
  - TRANSPLANT [None]
